FAERS Safety Report 7691620-X (Version None)
Quarter: 2011Q3

REPORT INFORMATION
  Report Type: 
  Country: None (occurrence: None)
  Receive Date: 20110817
  Receipt Date: 20110817
  Transmission Date: 20111222
  Serious: Yes (Hospitalization)
  Sender: FDA-Public Use
  Company Number: None

PATIENT
  Sex: Female
  Weight: 76.7 kg

DRUGS (2)
  1. TAXOL [Suspect]
     Dosage: 159 MG
     Dates: end: 20110805
  2. DEXAMETHASONE [Suspect]
     Dosage: 10 MG
     Dates: end: 20110803

REACTIONS (3)
  - BODY TEMPERATURE INCREASED [None]
  - STREPTOCOCCUS TEST POSITIVE [None]
  - UTERINE POLYP [None]
